FAERS Safety Report 9561902 (Version 2)
Quarter: 2013Q3

REPORT INFORMATION
  Report Type: Spontaneous
  Country: US (occurrence: US)
  Receive Date: 20130927
  Receipt Date: 20130927
  Transmission Date: 20140515
  Serious: No
  Sender: FDA-Public Use
  Company Number: US-BIOGENIDEC-2013BI064112

PATIENT
  Age: 51 Year
  Sex: Female

DRUGS (10)
  1. TECFIDERA [Suspect]
     Indication: MULTIPLE SCLEROSIS
     Route: 048
     Dates: start: 20130704
  2. TECFIDERA [Suspect]
     Indication: MULTIPLE SCLEROSIS
     Route: 048
  3. AMLODIPINE [Concomitant]
  4. CYMBALTA [Concomitant]
  5. NALTREXONE [Concomitant]
  6. LOW DOSE ASA [Concomitant]
  7. CLARITIN [Concomitant]
  8. FISH OIL [Concomitant]
  9. CALCIUM 500 [Concomitant]
  10. BIOTIN [Concomitant]

REACTIONS (2)
  - Flushing [Recovered/Resolved]
  - Pruritus [Recovered/Resolved]
